FAERS Safety Report 4338557-1 (Version None)
Quarter: 2004Q2

REPORT INFORMATION
  Report Type: 
  Country: None (occurrence: None)
  Receive Date: 20040409
  Receipt Date: 20040330
  Transmission Date: 20050107
  Serious: Yes (Other)
  Sender: FDA-Public Use
  Company Number: JP-JNJFOC-20031203345

PATIENT
  Age: 30 Year
  Sex: Male
  Weight: 82 kg

DRUGS (8)
  1. RISPERDAL [Suspect]
     Indication: SCHIZOPHRENIA
     Dosage: 2 MG, 1 IN 1 DAY, ORAL
     Route: 048
     Dates: start: 20010101
  2. LEVOMEPROMAZINE MALEATE (LEVOMEPROMAZINE MALEATE) [Suspect]
     Indication: SCHIZOPHRENIA
     Dosage: 25 MG, IN 1 DAY, ORAL
     Route: 048
  3. PAROXETINE HCL [Suspect]
     Indication: SCHIZOPHRENIA
     Dosage: 50 MG, IN 1 DAY, ORAL
     Route: 048
  4. PAROXETINE HCL [Suspect]
     Indication: DEPRESSION
     Dosage: 20 MG, IN 1 DAY, ORAL
     Route: 048
  5. PROMETHAZINE HCL [Suspect]
  6. TRIAZOLAM [Concomitant]
  7. LOMERIZINE HYDROCHLORIDE (ALL OTHER THERAPEUTIC PRODUCTS) [Concomitant]
  8. FAMOTIDINE [Concomitant]

REACTIONS (9)
  - BLOOD CHOLESTEROL INCREASED [None]
  - BLOOD TRIGLYCERIDES INCREASED [None]
  - DIABETES MELLITUS INADEQUATE CONTROL [None]
  - GLYCOSYLATED HAEMOGLOBIN INCREASED [None]
  - HEPATIC STEATOSIS [None]
  - HYPERGLYCAEMIA [None]
  - POLYDIPSIA [None]
  - URINE KETONE BODY PRESENT [None]
  - WEIGHT INCREASED [None]
